FAERS Safety Report 24290447 (Version 1)
Quarter: 2024Q3

REPORT INFORMATION
  Report Type: Spontaneous
  Country: CN (occurrence: CN)
  Receive Date: 20240906
  Receipt Date: 20240906
  Transmission Date: 20241016
  Serious: Yes (Other)
  Sender: CHEPLAPHARM
  Company Number: CN-CHEPLA-2024011312

PATIENT
  Age: 66 Year
  Sex: Male

DRUGS (4)
  1. OLANZAPINE [Suspect]
     Active Substance: OLANZAPINE
     Indication: Delirium
     Dosage: APPROVAL NUMBER: H20160497??DAILY DOSE: 2.5 MILLIGRAM
     Route: 048
     Dates: start: 20240815, end: 20240816
  2. OLANZAPINE [Suspect]
     Active Substance: OLANZAPINE
     Indication: Cognitive disorder
     Dosage: APPROVAL NUMBER: H20160497??DAILY DOSE: 2.5 MILLIGRAM
     Route: 048
     Dates: start: 20240815, end: 20240816
  3. OXAZEPAM [Suspect]
     Active Substance: OXAZEPAM
     Indication: Delirium
  4. OXAZEPAM [Suspect]
     Active Substance: OXAZEPAM
     Indication: Cognitive disorder

REACTIONS (4)
  - Loss of consciousness [Unknown]
  - Atrial fibrillation [Unknown]
  - Palpitations [Recovering/Resolving]
  - Hypotension [Recovering/Resolving]

NARRATIVE: CASE EVENT DATE: 20240816
